FAERS Safety Report 8001967-5 (Version None)
Quarter: 2011Q4

REPORT INFORMATION
  Report Type: 
  Country: None (occurrence: None)
  Receive Date: 20111222
  Receipt Date: 20111215
  Transmission Date: 20120403
  Serious: Yes (Hospitalization)
  Sender: FDA-Public Use
  Company Number: US-BAYER-201040003NA

PATIENT
  Age: 30 Year
  Sex: Female
  Weight: 67.12 kg

DRUGS (14)
  1. PROGESTERONE [Concomitant]
     Dosage: UNK UNK, PRN
  2. YAZ [Suspect]
     Indication: ACNE
     Dosage: UNK
     Route: 048
     Dates: start: 20070801, end: 20080716
  3. SPIRONOLACTONE [Concomitant]
     Indication: ACNE
     Dosage: 50-150 MG DAILY
     Route: 048
     Dates: start: 20070101, end: 20100315
  4. YAZ [Suspect]
     Indication: PREMENSTRUAL SYNDROME
  5. CALCIUM [Concomitant]
  6. VITAMIN B COMPLEX CAP [Concomitant]
  7. WARFARIN SODIUM [Concomitant]
     Dosage: UNK UNK, QD
  8. ANTIBIOTICS [Concomitant]
     Indication: ACNE
  9. ACETAMINOPHEN [Concomitant]
     Indication: PAIN
     Dosage: UNK UNK, PRN
  10. YASMIN [Suspect]
     Indication: CONTRACEPTION
  11. YASMIN [Suspect]
     Indication: PREMENSTRUAL SYNDROME
  12. IBUPROFEN [Concomitant]
     Indication: ARTHRALGIA
  13. YAZ [Suspect]
     Indication: CONTRACEPTION
  14. YASMIN [Suspect]
     Indication: ACNE
     Dosage: UNK
     Dates: start: 20070801, end: 20080716

REACTIONS (7)
  - JOINT SWELLING [None]
  - DEEP VEIN THROMBOSIS [None]
  - DEPRESSION [None]
  - PAIN IN EXTREMITY [None]
  - PANIC ATTACK [None]
  - ARTHRALGIA [None]
  - OEDEMA PERIPHERAL [None]
